FAERS Safety Report 17772607 (Version 1)
Quarter: 2020Q2

REPORT INFORMATION
  Report Type: Report from Study
  Country: US (occurrence: US)
  Receive Date: 20200512
  Receipt Date: 20200512
  Transmission Date: 20200714
  Serious: Yes (Hospitalization)
  Sender: FDA-Public Use
  Company Number: US-ROCHE-2597725

PATIENT
  Sex: Female

DRUGS (15)
  1. ENBREL [Concomitant]
     Active Substance: ETANERCEPT
     Dosage: INJECT INTO THE SKIN EVERY MONDAY
     Route: 065
  2. PLAQUENIL [Concomitant]
     Active Substance: HYDROXYCHLOROQUINE SULFATE
     Route: 048
  3. VITAMIN D2 [Concomitant]
     Active Substance: ERGOCALCIFEROL
     Dosage: 500 UNITS
     Route: 048
  4. TYLENOL [Concomitant]
     Active Substance: ACETAMINOPHEN
     Route: 048
  5. ESBRIET [Suspect]
     Active Substance: PIRFENIDONE
     Indication: IDIOPATHIC PULMONARY FIBROSIS
     Dosage: TAKE 1 CAPSULE BY MOUTH 3 TIMES A DAY DAILY FROM DAYS 1 TO 7; THEN TAKE 2 CAPSULE(S) BY MOUTH 3?TIME
     Route: 048
  6. PRINIVIL [Concomitant]
     Active Substance: LISINOPRIL
     Route: 048
  7. CLARITIN [Concomitant]
     Active Substance: LORATADINE
     Route: 048
  8. GUAIFENESIN. [Concomitant]
     Active Substance: GUAIFENESIN
     Route: 048
  9. PREDNISONE. [Concomitant]
     Active Substance: PREDNISONE
     Route: 048
  10. ESBRIET [Suspect]
     Active Substance: PIRFENIDONE
     Indication: IDIOPATHIC PULMONARY FIBROSIS
     Dosage: TAKE 1 TABLET BY MOUTH 3 TIMES A DAY
     Route: 048
  11. PROVENTIL HFA [SALBUTAMOL] [Concomitant]
     Dosage: INHALE 2 PUFF INTO THE LUNGS EVERY 4 HOURS
     Route: 065
  12. TESSALON [Concomitant]
     Active Substance: BENZONATATE
     Route: 048
  13. VENTOLIN HFA [Concomitant]
     Active Substance: ALBUTEROL SULFATE
     Dosage: INHALE 2 PUFF INTO THE LUNGS EVERY 4 HOURS
     Route: 065
  14. SYMBICORT [Concomitant]
     Active Substance: BUDESONIDE\FORMOTEROL FUMARATE DIHYDRATE
     Dosage: INHALE 2 PUFF INTO THE LUNGS 2 TIMES DAILY
     Route: 065
  15. OXYGEN. [Concomitant]
     Active Substance: OXYGEN

REACTIONS (1)
  - Pneumonia [Unknown]
